FAERS Safety Report 18291921 (Version 2)
Quarter: 2020Q3

REPORT INFORMATION
  Report Type: Spontaneous
  Country: NO (occurrence: NO)
  Receive Date: 20200921
  Receipt Date: 20200924
  Transmission Date: 20201103
  Serious: Yes (Life-Threatening, Other)
  Sender: FDA-Public Use
  Company Number: NO-MALLINCKRODT-T202004546

PATIENT
  Age: 67 Year
  Sex: Male

DRUGS (2)
  1. UVADEX [Suspect]
     Active Substance: METHOXSALEN
     Dosage: UNK (EXTRACORPOREAL)
     Route: 050
     Dates: start: 20200813, end: 20200909
  2. UVADEX [Suspect]
     Active Substance: METHOXSALEN
     Indication: GRAFT VERSUS HOST DISEASE
     Dosage: UNK (EXTRACORPOREAL)
     Route: 050
     Dates: start: 2018, end: 20200813

REACTIONS (6)
  - Loss of consciousness [Unknown]
  - Haematoma evacuation [Unknown]
  - Product use in unapproved indication [Unknown]
  - Subcutaneous haematoma [Unknown]
  - Hypotension [Unknown]
  - Venous perforation [Unknown]
